FAERS Safety Report 14381139 (Version 5)
Quarter: 2018Q2

REPORT INFORMATION
  Report Type: Report from Study
  Country: DE (occurrence: DE)
  Receive Date: 20180112
  Receipt Date: 20180622
  Transmission Date: 20180711
  Serious: Yes (Other)
  Sender: FDA-Public Use
  Company Number: DE-PFIZER INC-2018012945

PATIENT
  Age: 57 Year
  Sex: Male

DRUGS (19)
  1. LEUCOVORIN. [Suspect]
     Active Substance: LEUCOVORIN
     Dosage: 830 MG, CYCLIC
     Route: 041
     Dates: start: 20151020, end: 20161020
  2. GRANISETRON [Concomitant]
     Active Substance: GRANISETRON
     Dosage: UNK
     Dates: start: 20150922
  3. CALCIUM PHOSPHATE [Concomitant]
     Active Substance: CALCIUM PHOSPHATE
     Dosage: UNK
  4. IRINOTECAN HCL [Suspect]
     Active Substance: IRINOTECAN HYDROCHLORIDE
     Dosage: 370 MG, CYCLIC, SOLUTION FOR INFUSION
     Route: 041
     Dates: start: 20151020, end: 20151020
  5. ALIZAPRIDE HYDROCHLORIDE [Concomitant]
     Active Substance: ALIZAPRIDE HYDROCHLORIDE
     Dosage: UNK
     Dates: start: 20150922
  6. ATROPINE SULFATE. [Concomitant]
     Active Substance: ATROPINE SULFATE
     Dosage: UNK
     Dates: start: 20150822, end: 20151201
  7. CALCIUM PHOSPHATE [Concomitant]
     Active Substance: CALCIUM PHOSPHATE
     Dosage: UNK
     Dates: start: 20150922, end: 20151008
  8. AFLIBERCEPT [Suspect]
     Active Substance: AFLIBERCEPT
     Dosage: 330 MG, CYCLIC
     Route: 041
     Dates: start: 20151020, end: 20151020
  9. 5-FU [Suspect]
     Active Substance: FLUOROURACIL
     Dosage: 4900 MG, CYCLIC
     Route: 041
     Dates: start: 20150922, end: 20150922
  10. LEUCOVORIN. [Suspect]
     Active Substance: LEUCOVORIN
     Indication: COLORECTAL CANCER METASTATIC
     Dosage: 830 MG, CYCLIC
     Route: 041
     Dates: start: 20150922, end: 20150922
  11. IRINOTECAN HCL [Suspect]
     Active Substance: IRINOTECAN HYDROCHLORIDE
     Indication: COLORECTAL CANCER METASTATIC
     Dosage: 370 MG, CYCLIC, SOLUTION FOR INFUSION
     Route: 041
     Dates: start: 20150922, end: 20150922
  12. NOVAMINSULFON [Concomitant]
     Active Substance: METAMIZOLE
     Dosage: UNK
  13. SIMVASTATIN. [Concomitant]
     Active Substance: SIMVASTATIN
     Dosage: UNK
  14. AFLIBERCEPT [Suspect]
     Active Substance: AFLIBERCEPT
     Indication: COLORECTAL CANCER METASTATIC
     Dosage: 330 MG, CYCLIC
     Route: 041
     Dates: start: 20150922, end: 20150922
  15. 5-FU [Suspect]
     Active Substance: FLUOROURACIL
     Dosage: 830 MG, CYCLIC
     Route: 040
     Dates: start: 20151020, end: 20151020
  16. AMLODIPIN [Concomitant]
     Active Substance: AMLODIPINE BESYLATE
     Dosage: UNK
  17. 5-FU [Suspect]
     Active Substance: FLUOROURACIL
     Indication: COLORECTAL CANCER METASTATIC
     Dosage: 4900 MG, CYCLIC
     Route: 041
     Dates: start: 20151020, end: 20151020
  18. 5-FU [Suspect]
     Active Substance: FLUOROURACIL
     Dosage: 830 MG, CYCLIC
     Route: 040
     Dates: start: 20150922, end: 20150922
  19. CLOPIDOGREL [Concomitant]
     Active Substance: CLOPIDOGREL BISULFATE
     Dosage: UNK

REACTIONS (6)
  - Fatigue [Recovered/Resolved]
  - Inappropriate schedule of drug administration [Unknown]
  - Thrombocytopenia [Recovered/Resolved]
  - Dyspepsia [Recovered/Resolved]
  - Overdose [Unknown]
  - Off label use [Unknown]

NARRATIVE: CASE EVENT DATE: 20151020
